FAERS Safety Report 10908592 (Version 1)
Quarter: 2015Q1

REPORT INFORMATION
  Report Type: Spontaneous
  Country: US (occurrence: None)
  Receive Date: 20150309
  Receipt Date: 20150309
  Transmission Date: 20150721
  Serious: Yes (Disabling)
  Sender: FDA-Public Use
  Company Number: None

PATIENT
  Age: 63 Year
  Sex: Male
  Weight: 72.58 kg

DRUGS (10)
  1. FISH OIL [Concomitant]
     Active Substance: FISH OIL
  2. NEURONTIN [Suspect]
     Active Substance: GABAPENTIN
     Indication: INSOMNIA
     Dosage: TAKEN BY MOUTH
     Route: 048
  3. LYRICA [Concomitant]
     Active Substance: PREGABALIN
  4. MELATONIN [Concomitant]
     Active Substance: MELATONIN
  5. VITAMIN B12 [Concomitant]
     Active Substance: CYANOCOBALAMIN
  6. ASPIRIN. [Concomitant]
     Active Substance: ASPIRIN
  7. VITAMINS D [Concomitant]
  8. NEURONTIN [Concomitant]
     Active Substance: GABAPENTIN
  9. FOLIC ACID. [Concomitant]
     Active Substance: FOLIC ACID
  10. VOLTAREN [Concomitant]
     Active Substance: DICLOFENAC SODIUM

REACTIONS (1)
  - Cataract [None]

NARRATIVE: CASE EVENT DATE: 20110103
